FAERS Safety Report 19729422 (Version 13)
Quarter: 2025Q1

REPORT INFORMATION
  Report Type: Spontaneous
  Country: US (occurrence: US)
  Receive Date: 20210820
  Receipt Date: 20250204
  Transmission Date: 20250409
  Serious: Yes (Other)
  Sender: PFIZER
  Company Number: US-PFIZER INC-2021560131

PATIENT
  Age: 55 Year
  Sex: Female

DRUGS (9)
  1. XELJANZ XR [Suspect]
     Active Substance: TOFACITINIB CITRATE
     Indication: Rheumatoid arthritis
     Dates: start: 20160207
  2. XELJANZ XR [Suspect]
     Active Substance: TOFACITINIB CITRATE
     Dates: start: 20171001
  3. XELJANZ XR [Suspect]
     Active Substance: TOFACITINIB CITRATE
     Dosage: 11 MG TABLET BY MOUTH 1 TIME A DAY
     Route: 048
     Dates: start: 2017
  4. XELJANZ XR [Suspect]
     Active Substance: TOFACITINIB CITRATE
     Dates: start: 20200820, end: 20200820
  5. XELJANZ XR [Suspect]
     Active Substance: TOFACITINIB CITRATE
     Dates: start: 20210301
  6. XELJANZ XR [Suspect]
     Active Substance: TOFACITINIB CITRATE
     Dates: start: 20210303, end: 20220823
  7. XELJANZ XR [Suspect]
     Active Substance: TOFACITINIB CITRATE
     Dosage: 11 MG, 1X/DAY
     Route: 048
     Dates: end: 2024
  8. XELJANZ XR [Suspect]
     Active Substance: TOFACITINIB CITRATE
  9. XELJANZ XR [Suspect]
     Active Substance: TOFACITINIB CITRATE
     Dosage: 11 MG, DAILY
     Route: 048

REACTIONS (16)
  - Breast cancer [Unknown]
  - Malaise [Unknown]
  - Feeling abnormal [Unknown]
  - Fibromyalgia [Unknown]
  - Pain [Not Recovered/Not Resolved]
  - Swelling [Recovering/Resolving]
  - Alopecia [Unknown]
  - COVID-19 [Recovered/Resolved]
  - Influenza [Recovered/Resolved]
  - Dry mouth [Unknown]
  - Dysphonia [Unknown]
  - Hypersomnia [Unknown]
  - Sinusitis [Not Recovered/Not Resolved]
  - Arthropathy [Not Recovered/Not Resolved]
  - Product dose omission issue [Unknown]
  - Product dose omission in error [Unknown]

NARRATIVE: CASE EVENT DATE: 20201201
